FAERS Safety Report 4338396-1 (Version None)
Quarter: 2004Q1

REPORT INFORMATION
  Report Type: 
  Country: None (occurrence: None)
  Receive Date: 20040329
  Receipt Date: 20040220
  Transmission Date: 20041129
  Serious: No
  Sender: FDA-Public Use
  Company Number: USA040259860

PATIENT
  Sex: Male
  Weight: 18 kg

DRUGS (1)
  1. STRATTERA [Suspect]
     Dosage: 50 MG/1 IN THE MORNING

REACTIONS (2)
  - ACCIDENTAL OVERDOSE [None]
  - PRESCRIBED OVERDOSE [None]
